FAERS Safety Report 6220587-6 (Version None)
Quarter: 2009Q2

REPORT INFORMATION
  Report Type: 
  Country: None (occurrence: None)
  Receive Date: 20090610
  Receipt Date: 20090529
  Transmission Date: 20091009
  Serious: Yes (Death, Hospitalization)
  Sender: FDA-Public Use
  Company Number: SE-PFIZER INC-2009220053

PATIENT
  Age: 45 Year

DRUGS (2)
  1. SALAZOPYRIN [Suspect]
     Indication: CROHN'S DISEASE
     Dosage: UNK
     Dates: end: 20080901
  2. AZATIOPRIN [Suspect]
     Indication: CROHN'S DISEASE
     Dosage: UNK
     Dates: end: 20081001

REACTIONS (1)
  - LEUKAEMIA [None]
